FAERS Safety Report 11185727 (Version 2)
Quarter: 2015Q2

REPORT INFORMATION
  Report Type: Report from Study
  Country: DE (occurrence: DE)
  Receive Date: 20150612
  Receipt Date: 20150625
  Transmission Date: 20150821
  Serious: Yes (Death, Hospitalization, Other)
  Sender: FDA-Public Use
  Company Number: DE-GLAXOSMITHKLINE-DE2015GSK082336

PATIENT
  Age: 54 Year
  Sex: Male

DRUGS (9)
  1. DABRAFENIB [Suspect]
     Active Substance: DABRAFENIB
     Indication: METASTATIC MALIGNANT MELANOMA
     Dosage: 150 MG, BID
     Dates: start: 20150305, end: 20150604
  2. CEFUROXIME. [Concomitant]
     Active Substance: CEFUROXIME
     Indication: BRONCHITIS
     Dosage: 500 MG, BID
     Route: 048
     Dates: start: 20150603
  3. PANTOPRAZOLE SODIUM. [Concomitant]
     Active Substance: PANTOPRAZOLE SODIUM
     Indication: GASTROOESOPHAGEAL REFLUX DISEASE
     Dosage: 40 MG, QD
     Route: 048
     Dates: start: 200205
  4. TAMSULOSIN [Concomitant]
     Active Substance: TAMSULOSIN
     Indication: URINARY RETENTION
     Dosage: 0.4 MG, QD
     Route: 048
     Dates: start: 20141211
  5. DEXAMETHASONE. [Concomitant]
     Active Substance: DEXAMETHASONE
  6. BISOPROLOL [Concomitant]
     Active Substance: BISOPROLOL
     Indication: HYPERTENSION
     Dosage: 2.5 MG, QD
     Route: 048
     Dates: start: 200205
  7. TRAMETINIB [Suspect]
     Active Substance: TRAMETINIB
     Indication: METASTATIC MALIGNANT MELANOMA
     Dosage: 2 MG, QD
     Route: 048
     Dates: start: 20150305, end: 20150605
  8. ARCOXIA [Concomitant]
     Active Substance: ETORICOXIB
     Indication: PAIN
  9. ROXITHROMYCIN [Concomitant]
     Active Substance: ROXITHROMYCIN
     Indication: BRONCHITIS
     Dosage: 300 MG, QD
     Route: 048
     Dates: start: 20150603

REACTIONS (2)
  - Epilepsy [Recovered/Resolved]
  - Disease progression [Fatal]

NARRATIVE: CASE EVENT DATE: 20150604
